FAERS Safety Report 24370540 (Version 3)
Quarter: 2025Q3

REPORT INFORMATION
  Report Type: Report from Study
  Country: CA (occurrence: CA)
  Receive Date: 20240927
  Receipt Date: 20250925
  Transmission Date: 20251020
  Serious: Yes (Hospitalization, Other)
  Sender: TAKEDA
  Company Number: CA-TAKEDA-2024TUS095358

PATIENT
  Sex: Female

DRUGS (3)
  1. VEDOLIZUMAB [Suspect]
     Active Substance: VEDOLIZUMAB
     Indication: Colitis ulcerative
  2. VEDOLIZUMAB [Suspect]
     Active Substance: VEDOLIZUMAB
  3. XELJANZ [Concomitant]
     Active Substance: TOFACITINIB CITRATE

REACTIONS (2)
  - Colitis ulcerative [Not Recovered/Not Resolved]
  - Discomfort [Not Recovered/Not Resolved]
